FAERS Safety Report 4608120-3 (Version None)
Quarter: 2005Q2

REPORT INFORMATION
  Report Type: 
  Country: None (occurrence: None)
  Receive Date: 20050302
  Receipt Date: 20041221
  Transmission Date: 20051028
  Serious: Yes (Other)
  Sender: FDA-Public Use
  Company Number: 003769

PATIENT
  Sex: Female

DRUGS (1)
  1. TAMOXIFEN CITRATE(TAMOXIFEN CITRATE) TABLET [Suspect]
     Indication: BREAST CANCER
     Dates: start: 20030701

REACTIONS (1)
  - BREAST CANCER RECURRENT [None]
